FAERS Safety Report 18158065 (Version 1)
Quarter: 2020Q3

REPORT INFORMATION
  Report Type: Report from Study
  Country: CA (occurrence: CA)
  Receive Date: 20200817
  Receipt Date: 20200817
  Transmission Date: 20201103
  Serious: Yes (Death, Hospitalization)
  Sender: FDA-Public Use
  Company Number: CA-JNJFOC-20190726995

PATIENT
  Age: 73 Year
  Sex: Female
  Weight: 55.34 kg

DRUGS (2)
  1. REMICADE [Suspect]
     Active Substance: INFLIXIMAB
     Route: 042
     Dates: start: 20110223
  2. REMICADE [Suspect]
     Active Substance: INFLIXIMAB
     Indication: CROHN^S DISEASE
     Route: 042
     Dates: start: 20110209

REACTIONS (5)
  - Death [Fatal]
  - Underdose [Unknown]
  - Product dose omission issue [Unknown]
  - Influenza [Unknown]
  - Vascular access complication [Unknown]

NARRATIVE: CASE EVENT DATE: 201907
